FAERS Safety Report 6199239-7 (Version None)
Quarter: 2009Q2

REPORT INFORMATION
  Report Type: 
  Country: None (occurrence: None)
  Receive Date: 20090522
  Receipt Date: 20090514
  Transmission Date: 20091009
  Serious: Yes (Other)
  Sender: FDA-Public Use
  Company Number: GB-ELI_LILLY_AND_COMPANY-GB200905002825

PATIENT
  Age: 59 Year
  Sex: Female

DRUGS (9)
  1. FLUOXETINE HCL [Suspect]
     Indication: DEPRESSION
     Dosage: 60 MG, 2/D
     Route: 048
     Dates: start: 20080301, end: 20080101
  2. FLUOXETINE HCL [Suspect]
     Dosage: 40 MG, DAILY (1/D)
     Dates: start: 20080101
  3. FEXOFENADINE [Concomitant]
  4. HYPROMELLOSE [Concomitant]
  5. LANSOPRAZOLE [Concomitant]
  6. LEVOTHYROXINE SODIUM [Concomitant]
  7. MEBEVERINE HYDROCHLORIDE [Concomitant]
  8. SUMATRIPTAN SUCCINATE [Concomitant]
  9. VISCOTEARS [Concomitant]

REACTIONS (4)
  - ACCIDENTAL OVERDOSE [None]
  - DRUG DISPENSING ERROR [None]
  - MEMORY IMPAIRMENT [None]
  - TREMOR [None]
